FAERS Safety Report 5854653-1 (Version None)
Quarter: 2008Q3

REPORT INFORMATION
  Report Type: 
  Country: None (occurrence: None)
  Receive Date: 20080822
  Receipt Date: 20080810
  Transmission Date: 20090109
  Serious: Yes (Life-Threatening, Hospitalization, Other)
  Sender: FDA-Public Use
  Company Number: FR-PFIZER INC-2008067560

PATIENT
  Sex: Female

DRUGS (4)
  1. CHANTIX [Suspect]
     Route: 048
  2. SEROPRAM [Concomitant]
  3. XANAX [Concomitant]
     Dates: start: 20071001
  4. LEXOMIL [Concomitant]
     Dates: start: 20071001

REACTIONS (4)
  - COMA [None]
  - FALL [None]
  - INFECTION [None]
  - LUMBAR PUNCTURE ABNORMAL [None]
